FAERS Safety Report 21220858 (Version 3)
Quarter: 2022Q4

REPORT INFORMATION
  Report Type: Report from Study
  Country: US (occurrence: US)
  Receive Date: 20220817
  Receipt Date: 20221021
  Transmission Date: 20230113
  Serious: Yes (Hospitalization)
  Sender: FDA-Public Use
  Company Number: US-BIOGEN-2022BI01146861

PATIENT
  Sex: Female

DRUGS (35)
  1. TYSABRI [Suspect]
     Active Substance: NATALIZUMAB
     Indication: Multiple sclerosis
     Route: 050
     Dates: start: 20090917, end: 202205
  2. ACETAMINOPHEN\CODEINE [Concomitant]
     Active Substance: ACETAMINOPHEN\CODEINE
     Indication: Product used for unknown indication
     Dosage: ACETAMINOPHEN  300 MG + CODEIN 30 MG
     Route: 050
     Dates: start: 20210715
  3. ALBUTEROL SULFATE [Concomitant]
     Active Substance: ALBUTEROL SULFATE
     Indication: Product used for unknown indication
     Dosage: INHALE 1 TO 2 PUFFS BY MOUTH EVERY 4 HOURS AS NEEDED
     Route: 050
     Dates: start: 20211210
  4. BACLOFEN [Concomitant]
     Active Substance: BACLOFEN
     Indication: Product used for unknown indication
     Dosage: 7 DAYS
     Route: 050
     Dates: start: 20210303
  5. BACLOFEN [Concomitant]
     Active Substance: BACLOFEN
     Route: 050
     Dates: start: 20220116
  6. TEGRETOL [Concomitant]
     Active Substance: CARBAMAZEPINE
     Indication: Trigeminal neuralgia
     Dosage: 3 TABLETS BY MOUTH TWICE A DAY
     Route: 050
     Dates: start: 20220219
  7. TEGRETOL [Concomitant]
     Active Substance: CARBAMAZEPINE
     Dosage: 3 TABLETS BY MOUTH TWICE A DAY BY ORAL ROUTE  FOR 90 DAYS
     Route: 050
     Dates: start: 20220623
  8. DIAZEPAM [Concomitant]
     Active Substance: DIAZEPAM
     Indication: Product used for unknown indication
     Dosage: 1 TABLET BY MOUTH 4 TIMES A DAY
     Route: 050
     Dates: start: 20220325
  9. FUROSEMIDE [Concomitant]
     Active Substance: FUROSEMIDE
     Indication: Product used for unknown indication
     Route: 050
     Dates: start: 20200506
  10. GENTAMICIN [Concomitant]
     Active Substance: GENTAMICIN
     Indication: Product used for unknown indication
     Route: 050
     Dates: start: 20210317
  11. GLIMEPIRIDE [Concomitant]
     Active Substance: GLIMEPIRIDE
     Indication: Product used for unknown indication
     Route: 050
     Dates: start: 20220413
  12. IBUPROFEN [Concomitant]
     Active Substance: IBUPROFEN
     Indication: Product used for unknown indication
     Route: 050
     Dates: start: 20191029
  13. ALBUTEROL\IPRATROPIUM [Concomitant]
     Active Substance: ALBUTEROL\IPRATROPIUM
     Indication: Product used for unknown indication
     Dosage: 3 ML AS NEEDED INHALATION EVERY 6 HRS 30 DAYS
     Route: 050
     Dates: start: 20220205
  14. LEVOTHYROXINE [Concomitant]
     Active Substance: LEVOTHYROXINE
     Indication: Product used for unknown indication
     Route: 050
     Dates: start: 20210427
  15. LISINOPRIL [Concomitant]
     Active Substance: LISINOPRIL
     Indication: Product used for unknown indication
     Route: 050
     Dates: start: 20220427
  16. MELOXICAM [Concomitant]
     Active Substance: MELOXICAM
     Indication: Product used for unknown indication
     Dosage: 1 TAB BY MOUTH EVERY DAY WITH FOOD
     Route: 050
     Dates: start: 20211116
  17. METFORMIN [Concomitant]
     Active Substance: METFORMIN HYDROCHLORIDE
     Indication: Product used for unknown indication
     Route: 050
     Dates: start: 20211116
  18. METHENAMINE HIPPURATE [Concomitant]
     Active Substance: METHENAMINE HIPPURATE
     Indication: Product used for unknown indication
     Route: 050
     Dates: start: 20211210
  19. MUPIROCIN [Concomitant]
     Active Substance: MUPIROCIN
     Indication: Product used for unknown indication
     Route: 050
     Dates: start: 20210727
  20. NIFEDIPINE [Concomitant]
     Active Substance: NIFEDIPINE
     Indication: Product used for unknown indication
     Route: 050
     Dates: start: 20210613
  21. NYSTATIN [Concomitant]
     Active Substance: NYSTATIN
     Indication: Product used for unknown indication
     Dosage: 100,000 UNIT/GRAM
     Route: 050
     Dates: start: 20210427
  22. PANTOPRAZOLE [Concomitant]
     Active Substance: PANTOPRAZOLE
     Indication: Product used for unknown indication
     Dosage: BEFORE BREAKFAST
     Route: 050
     Dates: start: 20220105
  23. PREGABALIN [Concomitant]
     Active Substance: PREGABALIN
     Indication: Product used for unknown indication
     Route: 050
     Dates: start: 20211126
  24. COLLAGENASE SANTYL [Concomitant]
     Active Substance: COLLAGENASE CLOSTRIDIUM HISTOLYTICUM
     Indication: Product used for unknown indication
     Dosage: 250 UNITS/GM  TOPICAL OINTMENT
     Route: 050
     Dates: start: 20220411
  25. SIMVASTATIN [Concomitant]
     Active Substance: SIMVASTATIN
     Indication: Product used for unknown indication
     Route: 050
     Dates: start: 20211004
  26. SULFAMETHOXAZOLE\TRIMETHOPRIM [Concomitant]
     Active Substance: SULFAMETHOXAZOLE\TRIMETHOPRIM
     Indication: Product used for unknown indication
     Dosage: SULFAMETHOXAZOLE  800 MG  + TRIMETHOPRIM 160 MG
     Route: 050
     Dates: start: 20220411
  27. ACETAMINOPHEN [Concomitant]
     Active Substance: ACETAMINOPHEN
     Indication: Product used for unknown indication
     Route: 050
  28. OFLOXACIN [Concomitant]
     Active Substance: OFLOXACIN
     Indication: Product used for unknown indication
     Route: 050
     Dates: start: 20210913
  29. TRAMADOL [Concomitant]
     Active Substance: TRAMADOL
     Indication: Product used for unknown indication
     Route: 050
     Dates: start: 20220528
  30. TRESIBA FLEX TOUCH U-100 [Concomitant]
     Indication: Product used for unknown indication
     Dosage: INSULIN 100 UNITS /ML (3 ML ) SUBCUTANEOUS  PEN 42 UNITS EVERY EVENING
     Route: 050
     Dates: start: 20220516
  31. TRIAMCINOLONE ACETONIDE [Concomitant]
     Active Substance: TRIAMCINOLONE ACETONIDE
     Indication: Wound
     Route: 050
     Dates: start: 20220419
  32. VALACYCLOVIR [Concomitant]
     Active Substance: VALACYCLOVIR HYDROCHLORIDE
     Indication: Product used for unknown indication
     Route: 050
     Dates: start: 20211111
  33. VENLAFAXINE [Concomitant]
     Active Substance: VENLAFAXINE HYDROCHLORIDE
     Indication: Product used for unknown indication
     Route: 050
     Dates: start: 20220213
  34. TEGRETOL [Concomitant]
     Active Substance: CARBAMAZEPINE
     Indication: Product used for unknown indication
     Route: 050
  35. INSULIN NOS [Concomitant]
     Active Substance: INSULIN NOS
     Indication: Product used for unknown indication
     Dosage: ULTRAFINE SHORT PEN NEEDLE   31 GAUGE * 5/16
     Route: 050
     Dates: start: 20200403

REACTIONS (2)
  - Multiple sclerosis [Unknown]
  - Wound [Unknown]
